FAERS Safety Report 7626029-8 (Version None)
Quarter: 2011Q3

REPORT INFORMATION
  Report Type: 
  Country: None (occurrence: None)
  Receive Date: 20110713
  Receipt Date: 20110701
  Transmission Date: 20111222
  Serious: Yes (Hospitalization, Other)
  Sender: FDA-Public Use
  Company Number: JPI-P-015693

PATIENT
  Age: 57 Year
  Sex: Female
  Weight: 120.2032 kg

DRUGS (16)
  1. NADOLOL [Concomitant]
  2. MODIFINIL [Concomitant]
  3. METFORMIN HCL [Concomitant]
  4. IBUPROFEN [Concomitant]
  5. NIFEDIPINE [Concomitant]
  6. XYREM [Suspect]
     Indication: SLEEP DISORDER
     Dosage: ORAL ; 9 GM (4.5 GM,2 IN 1 D),ORAL
     Route: 048
     Dates: start: 20020101
  7. XYREM [Suspect]
     Indication: NARCOLEPSY
     Dosage: ORAL ; 9 GM (4.5 GM,2 IN 1 D),ORAL
     Route: 048
     Dates: start: 20020101
  8. FLUTICASONE PROPIONATE W/SALMETEROL [Concomitant]
  9. CLOPIDOGREL [Concomitant]
  10. ISOSORBIDE DINITRATE [Concomitant]
  11. OMEPRAZOLE [Concomitant]
  12. TRAMADOL HCL [Concomitant]
  13. ESCITALOPRAM [Concomitant]
  14. LOSARTAN POTASSIUM [Concomitant]
  15. ALBUTEROL SULFATE AUTOHALER [Concomitant]
  16. ASPIRIN [Concomitant]

REACTIONS (1)
  - MYOCARDIAL INFARCTION [None]
